FAERS Safety Report 5383847-7 (Version None)
Quarter: 2007Q3

REPORT INFORMATION
  Report Type: 
  Country: None (occurrence: None)
  Receive Date: 20070706
  Receipt Date: 20070629
  Transmission Date: 20080115
  Serious: Yes (Hospitalization)
  Sender: FDA-Public Use
  Company Number: S07-USA-02819-01

PATIENT
  Age: 67 Year
  Sex: Female

DRUGS (7)
  1. LEXAPRO [Suspect]
     Indication: ANXIETY
     Dosage: 20 MG QD; PO
     Route: 048
     Dates: start: 20050901
  2. LEXAPRO [Suspect]
     Indication: DEPRESSION
     Dosage: 20 MG QD; PO
     Route: 048
     Dates: start: 20050901
  3. NAMENDA [Concomitant]
  4. ARICEPT [Concomitant]
  5. FOSAMAX [Concomitant]
  6. FLECAINIDE ACETATE [Concomitant]
  7. TRAZODONE HCL [Concomitant]

REACTIONS (3)
  - BLOOD PRESSURE DECREASED [None]
  - DEHYDRATION [None]
  - URINARY TRACT INFECTION [None]
